FAERS Safety Report 8034604-4 (Version None)
Quarter: 2012Q1

REPORT INFORMATION
  Report Type: 
  Country: None (occurrence: None)
  Receive Date: 20120110
  Receipt Date: 20120106
  Transmission Date: 20120608
  Serious: Yes (Hospitalization, Other)
  Sender: FDA-Public Use
  Company Number: US-RB-036052-12

PATIENT
  Age: 33 Year
  Sex: Male

DRUGS (6)
  1. SEROQUEL [Suspect]
     Indication: SLEEP DISORDER
     Dosage: UNKNOWN DOSING REGIMEN
     Route: 048
     Dates: start: 20060101, end: 20100201
  2. SUBOXONE [Suspect]
     Indication: DRUG DEPENDENCE
     Dosage: 12-16 MG DAILY
     Route: 060
     Dates: start: 20070101, end: 20110701
  3. BUPRENORPHINE [Suspect]
     Dosage: 16 MG DAILY
     Route: 060
     Dates: start: 20110801, end: 20111225
  4. CYMBALTA [Concomitant]
     Indication: ANXIETY
     Dosage: UNKNOWN DOSING REGIMEN
     Route: 065
  5. SUBUTEX [Suspect]
     Indication: DRUG DEPENDENCE
     Dosage: 16 MG DAILY
     Route: 060
     Dates: start: 20110701, end: 20110801
  6. BUPRENORPHINE [Suspect]
     Indication: DRUG DEPENDENCE
     Dosage: 8 MG DAILY
     Route: 060
     Dates: start: 20111226

REACTIONS (6)
  - RAPID EYE MOVEMENTS SLEEP ABNORMAL [None]
  - FEELING ABNORMAL [None]
  - ANXIETY [None]
  - SUICIDAL IDEATION [None]
  - THINKING ABNORMAL [None]
  - UNDERDOSE [None]
